FAERS Safety Report 5192212-7 (Version None)
Quarter: 2006Q4

REPORT INFORMATION
  Report Type: 
  Country: None (occurrence: None)
  Receive Date: 20061220
  Receipt Date: 20061208
  Transmission Date: 20070319
  Serious: Yes (Life-Threatening, Hospitalization)
  Sender: FDA-Public Use
  Company Number: HQWYE868112DEC06

PATIENT
  Age: 41 Year
  Sex: Female

DRUGS (1)
  1. TIGECYCLINE (TIGECYCLINE, INJECTION) [Suspect]
     Indication: ABDOMINAL INFECTION
     Dosage: 100 MG LOADING DOSE, THEN 50 MG EVERY 12 HOURS INTRAVENOUS
     Route: 042
     Dates: start: 20061120, end: 20061204

REACTIONS (3)
  - DEEP VEIN THROMBOSIS [None]
  - DUODENAL ULCER HAEMORRHAGE [None]
  - SHOCK [None]
